FAERS Safety Report 21344949 (Version 4)
Quarter: 2023Q1

REPORT INFORMATION
  Report Type: Report from Study
  Country: JP (occurrence: None)
  Receive Date: 20220916
  Receipt Date: 20230323
  Transmission Date: 20230417
  Serious: Yes (Death, Other)
  Sender: FDA-Public Use
  Company Number: 2022A317982

PATIENT
  Age: 91 Year
  Sex: Female

DRUGS (3)
  1. ONDEXXYA [Suspect]
     Active Substance: ANDEXANET ALFA
     Indication: Cerebellar haemorrhage
     Dosage: DOSE UNKNOWN UNKNOWN
     Route: 041
     Dates: start: 20220909, end: 20220909
  2. AZOSEMIDE [Concomitant]
     Active Substance: AZOSEMIDE
     Indication: Cerebellar haemorrhage
     Dosage: DOSE UNKNOWN UNKNOWN
     Route: 041
     Dates: start: 20220909, end: 20220909
  3. MAGNESIUM OXIDE [Concomitant]
     Active Substance: MAGNESIUM OXIDE
     Indication: Cerebellar haemorrhage
     Dosage: DOSE UNKNOWN UNKNOWN
     Route: 041
     Dates: start: 20220909, end: 20220909

REACTIONS (2)
  - Cerebral ventricular rupture [Fatal]
  - Hydrocephalus [Unknown]

NARRATIVE: CASE EVENT DATE: 20220909
